FAERS Safety Report 6345516-6 (Version None)
Quarter: 2009Q3

REPORT INFORMATION
  Report Type: 
  Country: None (occurrence: None)
  Receive Date: 20090909
  Receipt Date: 20080211
  Transmission Date: 20100115
  Serious: No
  Sender: FDA-Public Use
  Company Number: US-BAYER-US-2007-025714

PATIENT
  Age: 60 Year
  Sex: Female
  Weight: 117 kg

DRUGS (5)
  1. FINACEA [Suspect]
     Indication: ROSACEA
     Dosage: UNK, UNK
     Route: 061
     Dates: start: 20070620
  2. ALBUTEROL [Concomitant]
     Route: 065
  3. ATROVENT [Concomitant]
     Route: 045
  4. NASALCROM [Concomitant]
     Route: 065
  5. DOXYCYCLINE [Concomitant]
     Route: 065

REACTIONS (1)
  - CYSTITIS INTERSTITIAL [None]
